FAERS Safety Report 5979509-5 (Version None)
Quarter: 2008Q4

REPORT INFORMATION
  Report Type: 
  Country: None (occurrence: None)
  Receive Date: 20081204
  Receipt Date: 20081127
  Transmission Date: 20090506
  Serious: Yes (Hospitalization, Disabling)
  Sender: FDA-Public Use
  Company Number: JP-B.I. PHARMACEUTICALS,INC./RIDGEFIELD-2008-BP-11781NB

PATIENT
  Sex: Female
  Weight: 42.8 kg

DRUGS (2)
  1. BI-SIFROL TABLETS [Suspect]
     Indication: PARKINSON'S DISEASE
     Dosage: 2MG
     Route: 048
     Dates: start: 20071003, end: 20080605
  2. CARBIDOPA AND LEVODOPA [Concomitant]
     Indication: PARKINSON'S DISEASE
     Dosage: 300MG
     Route: 048
     Dates: start: 20071003

REACTIONS (2)
  - DYSMORPHISM [None]
  - MALAISE [None]
